FAERS Safety Report 5034238-X (Version None)
Quarter: 2006Q2

REPORT INFORMATION
  Report Type: 
  Country: None (occurrence: None)
  Receive Date: 20060621
  Receipt Date: 20060606
  Transmission Date: 20061013
  Serious: Yes (Hospitalization, Disabling)
  Sender: FDA-Public Use
  Company Number: 414410

PATIENT
  Age: 20 Year
  Sex: Female
  Weight: 69.9 kg

DRUGS (1)
  1. ACCUTANE [Suspect]
     Indication: ACNE
     Dosage: 40 MG DAILY ORAL
     Route: 048
     Dates: start: 19990721, end: 20000110

REACTIONS (70)
  - ADNEXA UTERI MASS [None]
  - ALOPECIA [None]
  - ANHEDONIA [None]
  - ANXIETY [None]
  - APHTHOUS STOMATITIS [None]
  - ARTHRALGIA [None]
  - BLOOD POTASSIUM DECREASED [None]
  - BRONCHITIS VIRAL [None]
  - CALCIUM DEFICIENCY [None]
  - CERVICAL DYSPLASIA [None]
  - CERVICAL STRICTURE [None]
  - CONDITION AGGRAVATED [None]
  - CONSTIPATION [None]
  - CONTUSION [None]
  - CROHN'S DISEASE [None]
  - DEFORMITY [None]
  - DRUG INEFFECTIVE [None]
  - DRY SKIN [None]
  - DYSMENORRHOEA [None]
  - DYSPHAGIA [None]
  - DYSURIA [None]
  - ECHINOCOCCIASIS [None]
  - EMOTIONAL DISTRESS [None]
  - ENDOMETRIOSIS [None]
  - EPISTAXIS [None]
  - FEELING ABNORMAL [None]
  - FIBROADENOMA [None]
  - FIBROADENOMA OF BREAST [None]
  - FLANK PAIN [None]
  - FUNGAL INFECTION [None]
  - GASTRITIS [None]
  - GASTROENTERITIS VIRAL [None]
  - GASTROINTESTINAL DISORDER [None]
  - HAEMATOCHEZIA [None]
  - HAEMORRHAGE [None]
  - HAEMORRHOIDS [None]
  - HYPOAESTHESIA [None]
  - INADEQUATE DIET [None]
  - INCISION SITE COMPLICATION [None]
  - INFLAMMATORY BOWEL DISEASE [None]
  - INGROWING NAIL [None]
  - INSOMNIA [None]
  - INTESTINAL HAEMORRHAGE [None]
  - INTRA-ABDOMINAL HAEMORRHAGE [None]
  - IRRITABLE BOWEL SYNDROME [None]
  - LARYNGITIS [None]
  - LIP DRY [None]
  - MIGRAINE [None]
  - MUSCLE SPASMS [None]
  - MYALGIA [None]
  - MYCOPLASMA INFECTION [None]
  - NAUSEA [None]
  - OESOPHAGITIS ULCERATIVE [None]
  - ORAL CANDIDIASIS [None]
  - OVARIAN ADENOMA [None]
  - OVARIAN CYST [None]
  - PAIN [None]
  - PAPILLOMA VIRAL INFECTION [None]
  - PELVIC PAIN [None]
  - PHARYNGITIS [None]
  - POLYTRAUMATISM [None]
  - PURPURA [None]
  - RECTAL HAEMORRHAGE [None]
  - RECTAL TENESMUS [None]
  - SALPINGITIS [None]
  - STRESS [None]
  - TENSION HEADACHE [None]
  - UTERINE POLYP [None]
  - VIRAL INFECTION [None]
  - WEIGHT DECREASED [None]
